FAERS Safety Report 5324396-1 (Version None)
Quarter: 2007Q2

REPORT INFORMATION
  Report Type: 
  Country: None (occurrence: None)
  Receive Date: 20070514
  Receipt Date: 20070427
  Transmission Date: 20071010
  Serious: Yes (Other)
  Sender: FDA-Public Use
  Company Number: GB-PFIZER INC-2007037555

PATIENT
  Age: 62 Year
  Sex: Male

DRUGS (6)
  1. NICOTINE [Suspect]
     Indication: SMOKING CESSATION THERAPY
     Route: 055
     Dates: start: 20070405, end: 20070405
  2. ASPIRIN [Concomitant]
     Indication: MYOCARDIAL ISCHAEMIA
     Route: 048
     Dates: start: 19971202
  3. PERINDOPRIL [Concomitant]
     Indication: MYOCARDIAL ISCHAEMIA
     Dosage: DAILY DOSE:2MG
     Route: 048
     Dates: start: 20060831
  4. ROSUVASTATIN [Concomitant]
     Indication: MYOCARDIAL ISCHAEMIA
     Route: 048
     Dates: start: 20041102
  5. SALBUTAMOL [Concomitant]
     Route: 055
     Dates: start: 20011203
  6. TILDIEM [Concomitant]
     Indication: MYOCARDIAL ISCHAEMIA
     Route: 048
     Dates: start: 20030508

REACTIONS (3)
  - DYSPNOEA [None]
  - MALAISE [None]
  - THROAT TIGHTNESS [None]
